FAERS Safety Report 25006879 (Version 1)
Quarter: 2025Q1

REPORT INFORMATION
  Report Type: Spontaneous
  Country: IN (occurrence: IN)
  Receive Date: 20250225
  Receipt Date: 20250225
  Transmission Date: 20250408
  Serious: Yes (Hospitalization)
  Sender: ROCHE
  Company Number: IN-ROCHE-10000132873

PATIENT
  Age: 67 Year
  Sex: Male

DRUGS (1)
  1. TECENTRIQ [Suspect]
     Active Substance: ATEZOLIZUMAB
     Indication: Oesophageal carcinoma
     Route: 042
     Dates: start: 20240627

REACTIONS (3)
  - Off label use [Unknown]
  - Haemoglobin decreased [Unknown]
  - Aplasia pure red cell [Unknown]
